FAERS Safety Report 10589018 (Version 1)
Quarter: 2014Q4

REPORT INFORMATION
  Report Type: Spontaneous
  Country: GB (occurrence: GB)
  Receive Date: 20141118
  Receipt Date: 20141118
  Transmission Date: 20150529
  Serious: Yes (Hospitalization)
  Sender: FDA-Public Use
  Company Number: GB-CIPLA LTD.-2014GB01995

PATIENT
  Age: 34 Year
  Sex: Male

DRUGS (9)
  1. AMLODIPINE [Suspect]
     Active Substance: AMLODIPINE BESYLATE
  2. ANTI FREEZE SOLUTION [Suspect]
     Active Substance: ETHYLENE GLYCOL
     Dosage: 500 ML
  3. DOXAZOSIN [Suspect]
     Active Substance: DOXAZOSIN\DOXAZOSIN MESYLATE
  4. CITALOPRAM [Suspect]
     Active Substance: CITALOPRAM HYDROBROMIDE
     Dosage: 240 MG
  5. LODIPINE (AMLODIPINE BESYLATE) [Suspect]
     Active Substance: AMLODIPINE BESYLATE
  6. PERINDOPRIL [Suspect]
     Active Substance: PERINDOPRIL
  7. DIAZEPAM. [Suspect]
     Active Substance: DIAZEPAM
     Dosage: 140 MG
  8. COCODAMOL [Suspect]
     Active Substance: ACETAMINOPHEN\CODEINE PHOSPHATE
  9. TEMAZEPAM. [Suspect]
     Active Substance: TEMAZEPAM
     Dosage: 120 MG

REACTIONS (11)
  - Poisoning [None]
  - Blood creatinine increased [None]
  - Overdose [None]
  - Metabolic acidosis [None]
  - Loss of consciousness [None]
  - Hypoxia [None]
  - Chemical poisoning [None]
  - Hypotension [None]
  - Aggression [None]
  - Intentional overdose [None]
  - Crystal urine present [None]
